FAERS Safety Report 8278405-0 (Version None)
Quarter: 2012Q2

REPORT INFORMATION
  Report Type: 
  Country: None (occurrence: None)
  Receive Date: 20120412
  Receipt Date: 20111230
  Transmission Date: 20120825
  Serious: No
  Sender: FDA-Public Use
  Company Number: US-ASTRAZENECA-2010SE50371

PATIENT
  Age: 42 Year
  Sex: Male

DRUGS (5)
  1. NEXIUM [Suspect]
     Route: 048
  2. MORPHINE [Concomitant]
  3. CYMBALTA [Concomitant]
  4. SINGULAIR [Concomitant]
  5. XANAX [Concomitant]

REACTIONS (2)
  - GASTRIC DISORDER [None]
  - ROAD TRAFFIC ACCIDENT [None]
